FAERS Safety Report 26139853 (Version 1)
Quarter: 2025Q4

REPORT INFORMATION
  Report Type: Spontaneous
  Country: US (occurrence: US)
  Receive Date: 20251210
  Receipt Date: 20251210
  Transmission Date: 20260118
  Serious: No
  Sender: ROCHE
  Company Number: US-ROCHE-10000449680

PATIENT
  Sex: Female

DRUGS (1)
  1. XOLAIR [Suspect]
     Active Substance: OMALIZUMAB
     Indication: Anaphylactic reaction
     Dosage: 300MG IN THE FORM OR (2) 150MG AUTOINJECTORS?STRENGTH: 150MG
     Route: 058

REACTIONS (4)
  - Device issue [Unknown]
  - Needle issue [Unknown]
  - No adverse event [Unknown]
  - Off label use [Unknown]
